FAERS Safety Report 8987690 (Version 1)
Quarter: 2012Q4

REPORT INFORMATION
  Report Type: 
  Country: IT (occurrence: IT)
  Receive Date: 20121227
  Receipt Date: 20121227
  Transmission Date: 20130627
  Serious: Yes (Hospitalization)
  Sender: FDA-Public Use
  Company Number: JP-ASTRAZENECA-2012SE95784

PATIENT
  Age: 97 Year
  Sex: Female

DRUGS (9)
  1. BLOPRESS [Suspect]
     Indication: HYPERTENSION
     Route: 048
     Dates: start: 20121122, end: 20121213
  2. CIPRALEX [Concomitant]
     Route: 048
  3. ALTIAZEM [Concomitant]
     Route: 048
  4. ESOPRAL [Concomitant]
     Route: 048
  5. TAVOR [Concomitant]
     Route: 065
  6. CARDIRENE [Concomitant]
     Route: 048
  7. NITRODERM TTS [Concomitant]
     Route: 065
  8. DEURSIL [Concomitant]
     Route: 065
  9. CORDARONE [Concomitant]
     Route: 048

REACTIONS (4)
  - Confusional state [Recovering/Resolving]
  - Hyponatraemia [Recovering/Resolving]
  - Asthenia [Recovering/Resolving]
  - Sopor [Recovering/Resolving]
